FAERS Safety Report 4623111-4 (Version None)
Quarter: 2005Q1

REPORT INFORMATION
  Report Type: 
  Country: None (occurrence: None)
  Receive Date: 20050328
  Receipt Date: 20050328
  Transmission Date: 20050727
  Serious: Yes (Life-Threatening)
  Sender: FDA-Public Use
  Company Number: None

PATIENT
  Sex: Female
  Weight: 48.0813 kg

DRUGS (1)
  1. DURAGESIC-100 [Suspect]
     Dosage: WEAR 72 HRS

REACTIONS (1)
  - DRUG DEPENDENCE [None]
